FAERS Safety Report 18118147 (Version 4)
Quarter: 2020Q4

REPORT INFORMATION
  Report Type: Spontaneous
  Country: AT (occurrence: AT)
  Receive Date: 20200806
  Receipt Date: 20201124
  Transmission Date: 20210113
  Serious: Yes (Hospitalization, Disabling)
  Sender: FDA-Public Use
  Company Number: AT-ABBVIE-20K-009-3512870-00

PATIENT
  Age: 39 Year
  Sex: Male
  Weight: 83 kg

DRUGS (35)
  1. PANTOPRAZOL [Concomitant]
     Active Substance: PANTOPRAZOLE SODIUM
     Dosage: HEARTBURN 40MG ORAL  08.01.2019  11.03.2019 1X/D AS NEEDED
     Dates: start: 20190108, end: 20190311
  2. VIBROCIL [Concomitant]
     Indication: INFLUENZA
     Dosage: 0,1 MG  NASAL  1X/D, VIBROCIL 2.5/0.25
     Dates: start: 20181203, end: 20181210
  3. DESLORATADIN [Concomitant]
     Active Substance: DESLORATADINE
     Indication: PRURITUS
     Dosage: 5 MG ORAL  03.02.2020 ONGOING   BEI BED
     Dates: start: 20200203
  4. SKYRIZI [Suspect]
     Active Substance: RISANKIZUMAB-RZAA
     Indication: PSORIASIS
     Dosage: 150MG SUBCUTANEOUS EVERY 12 WEEKS
     Route: 058
     Dates: start: 2017, end: 20200203
  5. PANTOPRAZOL [Concomitant]
     Active Substance: PANTOPRAZOLE SODIUM
     Dosage: HEARTBURN 40MG ORAL 20.10.2019 ONGOING, 1X/D
     Dates: start: 20191020
  6. NAPROBENE [Concomitant]
     Active Substance: NAPROXEN
     Dosage: 500MG P.O. 1X/D P.O.
     Dates: start: 20170505, end: 20170505
  7. GASTROLOC [Concomitant]
     Indication: HELICOBACTER INFECTION
     Dosage: 40MG ORAL 20.12.2019 ONGOING 2X/D
     Dates: start: 20191220
  8. NOVALGIN (METAMIZOLE SODIUM) [Concomitant]
     Active Substance: METAMIZOLE SODIUM
     Indication: NECK PAIN
     Dosage: 25GTT ORAL 1X/D
     Dates: start: 20190225, end: 20190311
  9. PANTOPRAZOL [Concomitant]
     Active Substance: PANTOPRAZOLE SODIUM
     Dosage: GASTRITIS 40MG ORAL ONGOING  1X/D
  10. GASTROLOC [Concomitant]
     Indication: DYSPEPSIA
     Dosage: 40 MG ORAL  03.01.2020 ONGOING  1X/D, INDICATION HEARTBURN
     Dates: start: 20200103
  11. GASTROLOC [Concomitant]
     Dosage: 40 MG ORAL 2X TGL
     Dates: start: 20191220, end: 20200102
  12. AMOXICILLIN. [Concomitant]
     Active Substance: AMOXICILLIN
     Indication: HELICOBACTER INFECTION
     Dosage: 1000MG  ORAL  2X/D
     Dates: start: 20191220, end: 20191226
  13. ANAEROBEX [Concomitant]
     Active Substance: METRONIDAZOLE
     Indication: HELICOBACTER INFECTION
     Dosage: 500 MG ORAL 2X TGL
     Dates: start: 20191227, end: 20200102
  14. NOVALGIN (METAMIZOLE SODIUM) [Concomitant]
     Active Substance: METAMIZOLE SODIUM
     Indication: ARTHRALGIA
  15. PANTOPRAZOL [Concomitant]
     Active Substance: PANTOPRAZOLE SODIUM
     Indication: PRODUCT USED FOR UNKNOWN INDICATION
     Dosage: HEARTBURN 40MG ORAL  1X/D WHEN NEEDED
     Dates: start: 20190520, end: 20190602
  16. VOLTADOL [Concomitant]
     Indication: NECK PAIN
  17. ASPIRIN C [Concomitant]
     Active Substance: ACETAMINOPHEN\ASCORBIC ACID
     Indication: PRODUCT USED FOR UNKNOWN INDICATION
     Dosage: FLU  ASPIRIN C 400/240 MG P.O.  2X/D
     Dates: start: 20171111, end: 20171123
  18. AMOXICILLIN. [Concomitant]
     Active Substance: AMOXICILLIN
     Indication: INFLUENZA
     Dosage: 1000MG  ORAL   2X/D
     Dates: start: 20181126, end: 20181203
  19. SUCRALAN [Concomitant]
     Indication: DYSPEPSIA
     Dosage: 1G/5ML  ORAL 4X/D, SUCRALAN 1G/5ML
     Dates: start: 20191029, end: 20191112
  20. ASPIRIN COMPLEX [Concomitant]
     Active Substance: ASPIRIN\PSEUDOEPHEDRINE HYDROCHLORIDE
     Indication: HEADACHE
     Dosage: ASPIRIN COMPLEX 500/30MG  1X/D P.O.
     Dates: start: 20170507, end: 20170507
  21. SKYRIZI [Suspect]
     Active Substance: RISANKIZUMAB-RZAA
     Route: 058
     Dates: start: 20200505, end: 20200505
  22. LEVOFLOXACIN. [Concomitant]
     Active Substance: LEVOFLOXACIN
     Indication: HELICOBACTER INFECTION
     Dosage: 500MG  ORAL  2X/D
     Dates: start: 20191227, end: 20200102
  23. EASYANGIN [Concomitant]
     Indication: INFLUENZA
     Dosage: 2 HUBE ORAL 1X/D
     Dates: start: 20190201, end: 20190207
  24. VOLTADOL [Concomitant]
     Indication: ARTHRALGIA
     Dosage: TOPICAL 1X/D
     Dates: start: 20181125, end: 20190311
  25. LEVOXACIN [Concomitant]
     Active Substance: LEVOFLOXACIN
     Indication: HELICOBACTER INFECTION
     Dosage: 500 MG ORAL 2X TGL
     Dates: start: 20191227, end: 20200102
  26. RHINOSPRAY [Concomitant]
     Active Substance: TRAMAZOLINE HYDROCHLORIDE
     Indication: INFLUENZA
     Dosage: 0.18MG NASAL  3X/D
     Dates: start: 20171111, end: 20171123
  27. BIOFLORIN [Concomitant]
     Indication: GASTROENTERITIS
     Dosage: 254,7 MG  P.O. 3X/D 09.01.2018  16.01.2018
     Dates: start: 20180109, end: 20180116
  28. PANTOPRAZOL [Concomitant]
     Active Substance: PANTOPRAZOLE SODIUM
     Dosage: GASTROENTERITIS  40MG P.O. 3X/D
     Dates: start: 20180109, end: 20180116
  29. NAPROBENE [Concomitant]
     Active Substance: NAPROXEN
     Indication: HEADACHE
     Dosage: HEADACHE 500MG P.O. 1X/D  P.O. AM 07.05.2017
  30. GASTROLOC [Concomitant]
     Indication: DYSPEPSIA
     Dosage: 40 MG ORAL 2X TGL
     Dates: start: 20191220, end: 20200102
  31. TANTUM VERDE [Concomitant]
     Active Substance: BENZYDAMINE HYDROCHLORIDE
     Indication: INFLUENZA
     Dosage: 22.5MG  P.O.  3XD TANTUM VERDE GURGELLSG
     Dates: start: 20171111, end: 20171123
  32. AEROMUC [Concomitant]
     Active Substance: ACETYLCYSTEINE
     Indication: INFLUENZA
     Dosage: 600MG ORAL 1X/D  2X/D
     Dates: start: 20181126, end: 20181203
  33. CANDIO HERMAL [Concomitant]
     Indication: INTERTRIGO
     Dosage: TOPICAL 2X/D 1 FINGERSP.
     Dates: start: 20171023, end: 20171106
  34. ANAEROBEX [Concomitant]
     Active Substance: METRONIDAZOLE
     Indication: HELICOBACTER INFECTION
     Dosage: 500MG ORAL  2X/D
     Dates: start: 20191227, end: 20200102
  35. DESLORATADIN [Concomitant]
     Active Substance: DESLORATADINE
     Dosage: 5MG ORAL AS NEEDED 18.11.2019  ONGOING
     Dates: start: 20191118

REACTIONS (8)
  - Interstitial lung disease [Recovered/Resolved with Sequelae]
  - Interstitial lung disease [Unknown]
  - Interstitial lung disease [Not Recovered/Not Resolved]
  - Lung transplant [Not Recovered/Not Resolved]
  - Dyspnoea [Not Recovered/Not Resolved]
  - Cough [Not Recovered/Not Resolved]
  - Pneumonia [Unknown]
  - Oropharyngeal candidiasis [Unknown]

NARRATIVE: CASE EVENT DATE: 202006
